FAERS Safety Report 5177374-X (Version None)
Quarter: 2006Q4

REPORT INFORMATION
  Report Type: 
  Country: None (occurrence: None)
  Receive Date: 20061218
  Receipt Date: 20061207
  Transmission Date: 20070319
  Serious: Yes (Other)
  Sender: FDA-Public Use
  Company Number: JP-ELI_LILLY_AND_COMPANY-JP200612001373

PATIENT
  Age: 84 Year
  Sex: Female
  Weight: 45 kg

DRUGS (5)
  1. RALOXIFENE HCL [Suspect]
     Indication: OSTEOPOROSIS POSTMENOPAUSAL
     Dosage: 60 MG, DAILY (1/D)
     Route: 048
     Dates: start: 20041104
  2. AMEZINIUM METILSULFATE [Concomitant]
     Indication: ORTHOSTATIC HYPOTENSION
     Dosage: 20 MG, DAILY (1/D)
     Route: 048
     Dates: start: 20020619, end: 20061201
  3. BROTIZOLAM [Concomitant]
     Indication: INSOMNIA
     Dosage: 0.25 MG, DAILY (1/D)
     Route: 048
     Dates: start: 20020318
  4. TINELAC [Concomitant]
     Indication: CONSTIPATION
     Dosage: 2 D/F, DAILY (1/D)
     Route: 048
     Dates: start: 20030313
  5. LIPITOR [Concomitant]
     Indication: HYPERCHOLESTEROLAEMIA
     Dosage: 5 MG, DAILY (1/D)
     Route: 048
     Dates: start: 20050627

REACTIONS (2)
  - DUODENAL SCARRING [None]
  - REFLUX OESOPHAGITIS [None]
